FAERS Safety Report 5653642-X (Version None)
Quarter: 2008Q1

REPORT INFORMATION
  Report Type: 
  Country: None (occurrence: None)
  Receive Date: 20080306
  Receipt Date: 20080226
  Transmission Date: 20080703
  Serious: Yes (Other)
  Sender: FDA-Public Use
  Company Number: CN-ELI_LILLY_AND_COMPANY-CN200802006084

PATIENT
  Age: 2 Month
  Sex: Male
  Weight: 4 kg

DRUGS (1)
  1. CEFACLOR [Suspect]
     Indication: NASOPHARYNGITIS
     Dosage: 250 MG, DAILY (1/D)
     Route: 048
     Dates: start: 20080226, end: 20080226

REACTIONS (2)
  - DRUG DISPENSING ERROR [None]
  - OVERDOSE [None]
